FAERS Safety Report 25817210 (Version 1)
Quarter: 2025Q3

REPORT INFORMATION
  Report Type: Report from Study
  Country: CA (occurrence: CA)
  Receive Date: 20250918
  Receipt Date: 20250918
  Transmission Date: 20251021
  Serious: Yes (Other)
  Sender: SAMSUNG BIOEPIS
  Company Number: CA-SAMSUNG BIOEPIS-SB-2025-31046

PATIENT
  Age: 39 Year
  Sex: Male

DRUGS (3)
  1. BYOOVIZ [Suspect]
     Active Substance: RANIBIZUMAB-NUNA
     Indication: Diabetic retinal oedema
     Dates: start: 20250827
  2. METFORMIN [Concomitant]
     Active Substance: METFORMIN HYDROCHLORIDE
     Indication: Diabetes mellitus
  3. CHOLESTEROL [Concomitant]
     Active Substance: CHOLESTEROL
     Indication: Product used for unknown indication

REACTIONS (4)
  - Blindness transient [Recovered/Resolved]
  - Eye haemorrhage [Unknown]
  - Ocular discomfort [Recovered/Resolved]
  - Visual impairment [Unknown]
